FAERS Safety Report 8090374-5 (Version None)
Quarter: 2012Q1

REPORT INFORMATION
  Report Type: 
  Country: None (occurrence: None)
  Receive Date: 20120129
  Receipt Date: 20111118
  Transmission Date: 20120608
  Serious: No
  Sender: FDA-Public Use
  Company Number: US-ABBOTT-11P-163-0875982-00

PATIENT
  Sex: Female
  Weight: 131.66 kg

DRUGS (4)
  1. LANTUS [Concomitant]
     Indication: TYPE 2 DIABETES MELLITUS
  2. HUMIRA [Suspect]
     Indication: PSORIASIS
     Dates: start: 20111001
  3. APIDRA [Concomitant]
     Indication: TYPE 2 DIABETES MELLITUS
  4. PREDNISONE TAB [Suspect]
     Indication: PRODUCT USED FOR UNKNOWN INDICATION
     Dates: start: 20111115

REACTIONS (3)
  - ASTHMA [None]
  - BLOOD GLUCOSE INCREASED [None]
  - INJECTION SITE PAIN [None]
